FAERS Safety Report 19458032 (Version 1)
Quarter: 2021Q2

REPORT INFORMATION
  Report Type: Spontaneous
  Country: FR (occurrence: FR)
  Receive Date: 20210624
  Receipt Date: 20210624
  Transmission Date: 20210717
  Serious: Yes (Hospitalization)
  Sender: FDA-Public Use
  Company Number: FR-MYLANLABS-2021M1036782

PATIENT
  Age: 25 Year
  Sex: Female
  Weight: 68.9 kg

DRUGS (4)
  1. GAMUNEX [Suspect]
     Active Substance: HUMAN IMMUNOGLOBULIN G
     Indication: SUSAC^S SYNDROME
     Dosage: 10 GRAM
     Route: 042
     Dates: start: 20201218, end: 20201221
  2. GAMUNEX [Suspect]
     Active Substance: HUMAN IMMUNOGLOBULIN G
     Dosage: 20 UNK
     Route: 042
     Dates: start: 20201217, end: 20201221
  3. HYDROXYZINE MYLAN 25 MG, COMPRIM? PELLICUL? S?CABLE [Suspect]
     Active Substance: HYDROXYZINE HYDROCHLORIDE
     Indication: ANXIETY
     Dosage: 3 UNK
     Route: 048
     Dates: start: 20201211, end: 20201223
  4. SOLU?MEDROL [Suspect]
     Active Substance: METHYLPREDNISOLONE SODIUM SUCCINATE
     Indication: SUSAC^S SYNDROME
     Dosage: 500 MILLIGRAM
     Route: 042
     Dates: start: 20201208, end: 20201213

REACTIONS (1)
  - Hepatic cytolysis [Recovered/Resolved]

NARRATIVE: CASE EVENT DATE: 202012
